FAERS Safety Report 4898571-4 (Version None)
Quarter: 2006Q1

REPORT INFORMATION
  Report Type: 
  Country: None (occurrence: None)
  Receive Date: 20060130
  Receipt Date: 20060116
  Transmission Date: 20060701
  Serious: Yes (Hospitalization)
  Sender: FDA-Public Use
  Company Number: THYR-10195

PATIENT
  Age: 40 Year
  Sex: Female

DRUGS (4)
  1. THYROGEN [Suspect]
     Indication: DIAGNOSTIC PROCEDURE
     Dosage: 0.9 MG QD IM
     Route: 030
     Dates: start: 20040617, end: 20040618
  2. ZANIDIP [Concomitant]
  3. LEVOTHYROX [Concomitant]
  4. SEGLOR [Concomitant]

REACTIONS (16)
  - BACK PAIN [None]
  - BRONCHOSPASM [None]
  - CHEST PAIN [None]
  - CHRONIC OBSTRUCTIVE PULMONARY DISEASE [None]
  - COUGH [None]
  - DUODENOGASTRIC REFLUX [None]
  - DYSPNOEA EXERTIONAL [None]
  - HEADACHE [None]
  - HIATUS HERNIA [None]
  - HYPERVENTILATION [None]
  - HYPOCAPNIA [None]
  - HYPOXIA [None]
  - RALES [None]
  - RESPIRATORY DISORDER [None]
  - SINUSITIS [None]
  - TACHYCARDIA [None]
